FAERS Safety Report 24223061 (Version 3)
Quarter: 2024Q3

REPORT INFORMATION
  Report Type: Spontaneous
  Country: GB (occurrence: GB)
  Receive Date: 20240819
  Receipt Date: 20240904
  Transmission Date: 20241017
  Serious: Yes (Death, Hospitalization, Other)
  Sender: PFIZER
  Company Number: GB-ORESUND-24OPAJY0115P

PATIENT
  Age: 21 Month
  Sex: Male

DRUGS (9)
  1. CISPLATIN [Suspect]
     Active Substance: CISPLATIN
     Indication: Chemotherapy
     Dosage: 5 CYCLES OF INDUCTION CHEMOTHERAPY
  2. METHOTREXATE SODIUM [Suspect]
     Active Substance: METHOTREXATE SODIUM
     Indication: Chemotherapy
     Dosage: 5 CYCLES OF INDUCTION CHEMOTHERAPY
  3. VINCRISTINE SULFATE [Suspect]
     Active Substance: VINCRISTINE SULFATE
     Indication: Chemotherapy
     Dosage: 5 CYCLES OF INDUCTION CHEMOTHERAPY
  4. TOPOTECAN HYDROCHLORIDE [Suspect]
     Active Substance: TOPOTECAN HYDROCHLORIDE
     Indication: Chemotherapy
     Dosage: 12-MONTH MAINTENANCE CHEMOTHERAPY SCHEDULE WITH INTRATHECAL TOPOTECAN EVERY 28 DAYS
     Route: 037
  5. CORTICOSTEROID NOS [Suspect]
     Active Substance: CORTICOSTEROID NOS
  6. CYCLOPHOSPHAMIDE [Suspect]
     Active Substance: CYCLOPHOSPHAMIDE
     Indication: Chemotherapy
     Dosage: 5 CYCLES OF INDUCTION CHEMOTHERAPY
  7. ETOPOSIDE [Suspect]
     Active Substance: ETOPOSIDE
     Indication: Chemotherapy
     Dosage: 5 CYCLES OF INDUCTION CHEMOTHERAPY
  8. TRETINOIN [Suspect]
     Active Substance: TRETINOIN
     Dosage: ORAL RETINOIC ACID DIFFERENTIATION THERAPY D1-15
     Route: 048
  9. VALPROATE [Suspect]
     Active Substance: VALPROIC ACID
     Dosage: CONTINUOUS ORAL VALPROATE D1-28
     Route: 048

REACTIONS (7)
  - Neoplasm progression [Fatal]
  - Sepsis [Unknown]
  - Seizure [Unknown]
  - Diffusion-weighted brain MRI abnormal [Unknown]
  - Acquired gene mutation [Unknown]
  - Central nervous system lesion [Unknown]
  - Somnolence [Unknown]
